FAERS Safety Report 16754670 (Version 2)
Quarter: 2019Q4

REPORT INFORMATION
  Report Type: Spontaneous
  Country: US (occurrence: US)
  Receive Date: 20190829
  Receipt Date: 20191009
  Transmission Date: 20200122
  Serious: No
  Sender: FDA-Public Use
  Company Number: US-CELGENEUS-USA-20190806476

PATIENT
  Age: 57 Year
  Sex: Male

DRUGS (10)
  1. OTEZLA [Suspect]
     Active Substance: APREMILAST
     Indication: PSORIASIS
     Dosage: 60 MILLIGRAM
     Route: 048
     Dates: start: 201908, end: 20190905
  2. FLEXERIL [Concomitant]
     Active Substance: CYCLOBENZAPRINE HYDROCHLORIDE
     Indication: MUSCLE RELAXANT THERAPY
     Route: 065
  3. ATORVASTATIN [Concomitant]
     Active Substance: ATORVASTATIN
     Indication: HYPERCHOLESTEROLAEMIA
     Route: 065
  4. ZANTAC [Concomitant]
     Active Substance: RANITIDINE HYDROCHLORIDE
     Indication: CROHN^S DISEASE
     Route: 065
     Dates: start: 2018
  5. OTEZLA [Suspect]
     Active Substance: APREMILAST
     Indication: ECZEMA
  6. PENTASA [Concomitant]
     Active Substance: MESALAMINE
     Indication: CROHN^S DISEASE
     Route: 065
  7. AMLODIPINE [Concomitant]
     Active Substance: AMLODIPINE BESYLATE
     Indication: HYPERTENSION
     Route: 065
  8. CORDRAN [Concomitant]
     Active Substance: FLURANDRENOLIDE
     Indication: RASH PRURITIC
     Route: 065
     Dates: start: 20190909
  9. MULTIVITAMINS [Concomitant]
     Active Substance: VITAMINS
     Indication: SUPPLEMENTATION THERAPY
     Route: 065
  10. OTEZLA [Suspect]
     Active Substance: APREMILAST
     Indication: PSORIASIS
     Dosage: 10 MG, 20 MG, 30 MG
     Route: 048
     Dates: start: 20190712

REACTIONS (11)
  - Eczema [Recovered/Resolved]
  - Presyncope [Recovered/Resolved]
  - Heart rate increased [Recovered/Resolved]
  - Nail disorder [Unknown]
  - Leprosy [Unknown]
  - Dizziness [Recovered/Resolved]
  - Therapy non-responder [Unknown]
  - Abdominal pain upper [Recovered/Resolved]
  - Headache [Recovered/Resolved]
  - Nausea [Recovered/Resolved]
  - Drug ineffective [Unknown]

NARRATIVE: CASE EVENT DATE: 2019
